FAERS Safety Report 8055682-2 (Version None)
Quarter: 2012Q1

REPORT INFORMATION
  Report Type: 
  Country: None (occurrence: None)
  Receive Date: 20120119
  Receipt Date: 20120109
  Transmission Date: 20120608
  Serious: Yes (Other)
  Sender: FDA-Public Use
  Company Number: CA-ELI_LILLY_AND_COMPANY-CA201201002987

PATIENT
  Age: 84 Year
  Sex: Female

DRUGS (11)
  1. FORTEO [Suspect]
     Indication: OSTEOPOROSIS
     Dosage: 20 UG, QD
     Route: 058
     Dates: start: 20111130
  2. XALATAN [Concomitant]
  3. TADALAFIL [Concomitant]
  4. DIAZEPAM [Concomitant]
  5. PREMARIN [Concomitant]
  6. ASPIRIN [Concomitant]
  7. ATACAND [Concomitant]
  8. AMITRIPTYLINE HCL [Concomitant]
  9. COUMADIN [Concomitant]
  10. MAXIDEX [Concomitant]
     Indication: EYE DISORDER
  11. BOSENTAN [Concomitant]

REACTIONS (2)
  - DEAFNESS UNILATERAL [None]
  - HYPOACUSIS [None]
